FAERS Safety Report 10781348 (Version 5)
Quarter: 2016Q2

REPORT INFORMATION
  Report Type: Spontaneous
  Country: US (occurrence: US)
  Receive Date: 20150210
  Receipt Date: 20160505
  Transmission Date: 20160815
  Serious: No
  Sender: FDA-Public Use
  Company Number: US-PFIZER INC-2015047108

PATIENT
  Age: 61 Year
  Sex: Male
  Weight: 78.46 kg

DRUGS (14)
  1. DULOXETINE HCL [Concomitant]
     Active Substance: DULOXETINE HYDROCHLORIDE
     Dosage: 60 MG, 1X/DAY
     Route: 048
     Dates: start: 20150414
  2. IBUPROFEN. [Concomitant]
     Active Substance: IBUPROFEN
     Dosage: 600 MG, 3X/DAY WITH FOOD AS NEEDED
     Route: 048
     Dates: start: 20150630
  3. PROAIR HFA [Concomitant]
     Active Substance: ALBUTEROL SULFATE
     Indication: DYSPNOEA
  4. NICOTINE. [Concomitant]
     Active Substance: NICOTINE
     Dosage: 7 MG, 1X/DAY
  5. NICOTINE. [Concomitant]
     Active Substance: NICOTINE
     Indication: SMOKING CESSATION THERAPY
     Dosage: 21 MG, 1X/DAY
     Dates: start: 20150321
  6. TELMISARTAN. [Concomitant]
     Active Substance: TELMISARTAN
     Dosage: 40 MG, 1X/DAY
     Route: 048
     Dates: start: 20150217
  7. NICOTINE. [Concomitant]
     Active Substance: NICOTINE
     Indication: SMOKING CESSATION THERAPY
     Dosage: 14 MG, 1X/DAY
     Dates: start: 20150414
  8. AMLODIPINE BESYLATE. [Concomitant]
     Active Substance: AMLODIPINE BESYLATE
     Dosage: 2.5 MG, 1X/DAY
     Route: 048
     Dates: start: 20150818
  9. NICOTINE. [Concomitant]
     Active Substance: NICOTINE
     Dosage: 7 MG, 1X/DAY
  10. LYRICA [Suspect]
     Active Substance: PREGABALIN
     Indication: NEUROPATHY PERIPHERAL
     Dosage: 100 MG, 2X/DAY
     Route: 048
  11. NICOTINE. [Concomitant]
     Active Substance: NICOTINE
     Dosage: 14 MG, 1X/DAY
  12. GABAPENTIN. [Concomitant]
     Active Substance: GABAPENTIN
     Dosage: 100 MG, 3X/DAY
     Route: 048
     Dates: start: 20150925
  13. PROAIR HFA [Concomitant]
     Active Substance: ALBUTEROL SULFATE
     Indication: COUGH
     Dosage: INHALE TWO PUFFS EVERY 4-6 HOURS AS NEEDED
     Dates: start: 20150630
  14. ROPINIROLE HCL [Concomitant]
     Active Substance: ROPINIROLE HYDROCHLORIDE
     Dosage: 0.25 MG, DAILY (THEN MAY INCREASE TO TAKE TWO TABLETS BY MOUTH IN THE EVENING)
     Route: 048
     Dates: start: 20150818

REACTIONS (8)
  - Blood bilirubin abnormal [Unknown]
  - Specific gravity urine abnormal [Unknown]
  - Activities of daily living impaired [Unknown]
  - Mean cell volume increased [Unknown]
  - Red cell distribution width increased [Unknown]
  - Intentional product use issue [Unknown]
  - Mean cell haemoglobin increased [Unknown]
  - Urine ketone body present [Unknown]
